FAERS Safety Report 15084338 (Version 1)
Quarter: 2018Q2

REPORT INFORMATION
  Report Type: Spontaneous
  Country: IT (occurrence: IT)
  Receive Date: 20180628
  Receipt Date: 20180628
  Transmission Date: 20180711
  Serious: Yes (Other)
  Sender: FDA-Public Use
  Company Number: IT-PFIZER INC-2018257896

PATIENT
  Age: 70 Year
  Sex: Female

DRUGS (2)
  1. EN [Concomitant]
     Active Substance: DELORAZEPAM
     Dosage: UNK
  2. ZOLOFT [Suspect]
     Active Substance: SERTRALINE HYDROCHLORIDE
     Indication: DRUG ABUSE
     Dosage: 2 DF, SINGLE
     Route: 048
     Dates: start: 20180401, end: 20180401

REACTIONS (3)
  - Substance abuse [Recovering/Resolving]
  - Sopor [Recovering/Resolving]
  - Dizziness postural [Recovering/Resolving]

NARRATIVE: CASE EVENT DATE: 20180401
